FAERS Safety Report 8708730 (Version 2)
Quarter: 2013Q4

REPORT INFORMATION
  Report Type: Spontaneous
  Country: US (occurrence: US)
  Receive Date: 20120806
  Receipt Date: 20131031
  Transmission Date: 20140711
  Serious: No
  Sender: FDA-Public Use
  Company Number: US-009507513-2012SP034666

PATIENT
  Sex: Male

DRUGS (1)
  1. COPPERTONE SPORT LOTION SPF 50 [Suspect]
     Indication: PRODUCT USED FOR UNKNOWN INDICATION
     Dosage: 2 DF, UNKNOWN
     Route: 061

REACTIONS (2)
  - Rash papular [Recovered/Resolved]
  - Pruritus [Unknown]
